FAERS Safety Report 5042524-2 (Version None)
Quarter: 2006Q2

REPORT INFORMATION
  Report Type: 
  Country: None (occurrence: None)
  Receive Date: 20060627
  Receipt Date: 20060620
  Transmission Date: 20061013
  Serious: Yes (Death)
  Sender: FDA-Public Use
  Company Number: 225772

PATIENT
  Age: 70 Year
  Sex: Male

DRUGS (4)
  1. GRTPA (ALTEPLASE) PWDR + SOLVENT, INFUSION SOLN [Suspect]
     Indication: CEREBRAL INFARCTION
     Dosage: INTRAVENOUS
     Route: 042
     Dates: start: 20060317, end: 20060317
  2. ANTIBIOTIC (ANTIBIOTIC NOS) [Suspect]
  3. UNASYN (AMPICILLIN, SULBACTAM SODIUM) [Concomitant]
  4. SULBACTAM (CEFOPERAZONE SODIUM, SULBACTAM SODIUM) [Concomitant]

REACTIONS (7)
  - BLOOD PRESSURE DECREASED [None]
  - CEREBRAL INFARCTION [None]
  - DIALYSIS [None]
  - HAEMORRHAGIC CEREBRAL INFARCTION [None]
  - HEART RATE DECREASED [None]
  - RENAL FAILURE [None]
  - RESPIRATORY ARREST [None]
